FAERS Safety Report 21371039 (Version 1)
Quarter: 2022Q3

REPORT INFORMATION
  Report Type: Spontaneous
  Country: US (occurrence: US)
  Receive Date: 20220923
  Receipt Date: 20220923
  Transmission Date: 20221027
  Serious: No
  Sender: FDA-Public Use
  Company Number: US-PFIZER INC-202201177217

PATIENT
  Age: 89 Year
  Sex: Female

DRUGS (3)
  1. RETACRIT [Suspect]
     Active Substance: EPOETIN ALFA-EPBX
     Indication: Chronic kidney disease
     Dosage: UNK, MONTHLY
     Dates: start: 2022
  2. RETACRIT [Suspect]
     Active Substance: EPOETIN ALFA-EPBX
     Indication: Anaemia
  3. RETACRIT [Suspect]
     Active Substance: EPOETIN ALFA-EPBX
     Indication: Full blood count decreased

REACTIONS (3)
  - COVID-19 [Recovered/Resolved]
  - Hypoacusis [Unknown]
  - Ear congestion [Unknown]

NARRATIVE: CASE EVENT DATE: 20220101
